FAERS Safety Report 7731775-1 (Version None)
Quarter: 2011Q3

REPORT INFORMATION
  Report Type: 
  Country: None (occurrence: None)
  Receive Date: 20110906
  Receipt Date: 20110901
  Transmission Date: 20111222
  Serious: Yes (Death, Life-Threatening)
  Sender: FDA-Public Use
  Company Number: PHHY2011JP67300

PATIENT
  Sex: Male
  Weight: 62 kg

DRUGS (26)
  1. IMATINIB MESYLATE [Suspect]
     Dosage: 600 MG, DAILY
     Route: 048
     Dates: start: 20080901, end: 20080907
  2. METHOTREXATE [Concomitant]
     Dosage: 1765 MG, UNK
     Route: 041
  3. DEXAMETHASONE [Concomitant]
     Indication: ACUTE LYMPHOCYTIC LEUKAEMIA
     Dosage: 4 MG, UNK
     Dates: start: 20080616, end: 20080616
  4. LASIX [Concomitant]
     Indication: PROPHYLAXIS
     Dosage: 10 MG, UNK
     Route: 048
     Dates: start: 20080301
  5. METHOTREXATE [Concomitant]
     Indication: ACUTE LYMPHOCYTIC LEUKAEMIA
     Dosage: 15 MG, UNK
     Dates: start: 20080317
  6. CYTARABINE [Concomitant]
     Dosage: 40 MG, UNK
  7. CYTARABINE [Concomitant]
     Dosage: 40 MG, UNK
  8. DECADRON [Concomitant]
     Dosage: 4 MG, UNK
     Dates: start: 20080317
  9. DECADRON [Concomitant]
     Dosage: 4 MG, UNK
  10. IMATINIB MESYLATE [Suspect]
     Dosage: 600 MG, DAILY
     Route: 048
     Dates: start: 20080519, end: 20080615
  11. IMATINIB MESYLATE [Suspect]
     Dosage: 600 MG, DAILY
     Route: 048
     Dates: start: 20080714, end: 20080810
  12. PAXIL [Concomitant]
     Indication: PROPHYLAXIS
     Dosage: 30 MG, UNK
     Route: 048
     Dates: start: 20080301
  13. METHOTREXATE [Concomitant]
     Dosage: 15 MG, UNK
  14. METHOTREXATE [Concomitant]
     Dosage: 15 MG, UNK
     Dates: end: 20080616
  15. CYTARABINE [Concomitant]
     Dosage: 40 MG, UNK
     Dates: end: 20080616
  16. SPRYCEL [Suspect]
     Indication: ACUTE LYMPHOCYTIC LEUKAEMIA
  17. CYTARABINE [Concomitant]
     Dosage: 3520 MG, UNK
  18. METHYLPREDNISOLONE [Concomitant]
     Indication: ACUTE LYMPHOCYTIC LEUKAEMIA
     Dosage: 100 MG, UNK
     Route: 041
     Dates: start: 20080421, end: 20080423
  19. URSO 250 [Concomitant]
     Indication: PROPHYLAXIS
     Dosage: 300 MG, UNK
     Route: 048
     Dates: start: 20080301
  20. IMATINIB MESYLATE [Suspect]
     Dosage: 600 MG, DAILY
     Route: 048
     Dates: start: 20080304, end: 20080418
  21. METHOTREXATE [Concomitant]
     Dosage: 15 MG, UNK
  22. CYTARABINE [Concomitant]
     Indication: ACUTE LYMPHOCYTIC LEUKAEMIA
     Dosage: 40 MG, UNK
     Dates: start: 20080317
  23. DECADRON [Concomitant]
     Dosage: 4 MG, UNK
     Dates: end: 20080519
  24. IMATINIB MESYLATE [Suspect]
     Indication: ACUTE LYMPHOCYTIC LEUKAEMIA
     Dosage: 400 MG, DAILY
     Route: 048
     Dates: start: 20080301, end: 20080303
  25. VINCRISTINE SULFATE [Concomitant]
     Indication: ACUTE LYMPHOCYTIC LEUKAEMIA
     Dosage: 2 MG, UNK
     Route: 041
     Dates: start: 20080301
  26. VINCRISTINE SULFATE [Concomitant]
     Dosage: 1 MG, UNK
     Route: 041
     Dates: end: 20080308

REACTIONS (2)
  - DEATH [None]
  - ACUTE MYELOID LEUKAEMIA [None]
